FAERS Safety Report 7176951-4 (Version None)
Quarter: 2010Q4

REPORT INFORMATION
  Report Type: 
  Country: None (occurrence: None)
  Receive Date: 20101220
  Receipt Date: 20101213
  Transmission Date: 20110411
  Serious: Yes (Other)
  Sender: FDA-Public Use
  Company Number: US-AMGEN-USASP2010009127

PATIENT

DRUGS (3)
  1. ENBREL [Suspect]
     Indication: PSORIASIS
     Dosage: 50 MG, QWK
     Dates: start: 20101212, end: 20101212
  2. ENBREL [Suspect]
     Indication: PSORIATIC ARTHROPATHY
  3. BENADRYL [Suspect]

REACTIONS (9)
  - DISTURBANCE IN ATTENTION [None]
  - DRY MOUTH [None]
  - FEELING ABNORMAL [None]
  - FEELING HOT [None]
  - HYPOAESTHESIA [None]
  - MIGRAINE [None]
  - NERVOUSNESS [None]
  - PARAESTHESIA [None]
  - PRURITUS GENERALISED [None]
